FAERS Safety Report 9873308 (Version 2)
Quarter: 2014Q1

REPORT INFORMATION
  Report Type: Other
  Country: US (occurrence: US)
  Receive Date: 20140206
  Receipt Date: 20140206
  Transmission Date: 20141002
  Serious: No
  Sender: FDA-Public Use
  Company Number: US-ACORDA-ACO_101049_2013

PATIENT
  Age: 62 Year
  Sex: Male

DRUGS (2)
  1. AMPYRA [Suspect]
     Indication: MYASTHENIC SYNDROME
     Dosage: 10 MG, BID
     Route: 065
     Dates: start: 20131222, end: 20131227
  2. PYRIDOSTIGMINE [Concomitant]
     Indication: MYASTHENIC SYNDROME
     Dosage: UNK
     Route: 065

REACTIONS (2)
  - Balance disorder [Unknown]
  - Dizziness [Unknown]
